FAERS Safety Report 7028783-5 (Version None)
Quarter: 2010Q4

REPORT INFORMATION
  Report Type: 
  Country: None (occurrence: None)
  Receive Date: 20101004
  Receipt Date: 20101004
  Transmission Date: 20110411
  Serious: Yes (Hospitalization, Disabling)
  Sender: FDA-Public Use
  Company Number: None

PATIENT
  Age: 40 Year
  Sex: Male

DRUGS (1)
  1. AVASTIN [Suspect]
     Indication: MACULAR DEGENERATION
     Dosage: 1.25 MG 1 INTRAOCULAR
     Route: 031
     Dates: start: 20100908, end: 20100908

REACTIONS (3)
  - EYE PAIN [None]
  - EYE SWELLING [None]
  - VISUAL ACUITY REDUCED [None]
